FAERS Safety Report 11805145 (Version 1)
Quarter: 2015Q4

REPORT INFORMATION
  Report Type: Report from Study
  Country: CN (occurrence: CN)
  Receive Date: 20151206
  Receipt Date: 20151206
  Transmission Date: 20160305
  Serious: Yes (Death, Disabling)
  Sender: FDA-Public Use
  Company Number: CN-ASTRAZENECA-2015SE95765

PATIENT
  Age: 20809 Day
  Sex: Female
  Weight: 55 kg

DRUGS (1)
  1. IRESSA [Suspect]
     Active Substance: GEFITINIB
     Indication: LUNG ADENOCARCINOMA
     Route: 048
     Dates: start: 20150416, end: 20150930

REACTIONS (3)
  - Visual impairment [Not Recovered/Not Resolved]
  - Death [Fatal]
  - Deafness [Not Recovered/Not Resolved]

NARRATIVE: CASE EVENT DATE: 20150829
